FAERS Safety Report 20668412 (Version 1)
Quarter: 2022Q2

REPORT INFORMATION
  Report Type: Spontaneous
  Country: GB (occurrence: GB)
  Receive Date: 20220404
  Receipt Date: 20220404
  Transmission Date: 20220721
  Serious: Yes (Hospitalization, Other)
  Sender: FDA-Public Use
  Company Number: GB-TEVA-2019-GB-1103655

PATIENT
  Age: 52 Year
  Sex: Female

DRUGS (1)
  1. LEVOTHYROXINE [Suspect]
     Active Substance: LEVOTHYROXINE
     Indication: Product used for unknown indication
     Dosage: ADMINISTERED FOR 2-3 WEEKS
     Route: 065
     Dates: start: 201806, end: 201807

REACTIONS (17)
  - Malaise [Unknown]
  - Peripheral swelling [Unknown]
  - Pain in extremity [Unknown]
  - Back pain [Unknown]
  - Chest pain [Unknown]
  - Product substitution issue [Unknown]
  - Cardiac disorder [Unknown]
  - Kidney infection [Unknown]
  - Palpitations [Unknown]
  - Patient dissatisfaction with treatment [Unknown]
  - Toxicity to various agents [Unknown]
  - Loss of personal independence in daily activities [Unknown]
  - Alopecia [Unknown]
  - Yellow skin [Unknown]
  - Muscular weakness [Unknown]
  - Pain in extremity [Unknown]
  - Suspected product quality issue [Unknown]

NARRATIVE: CASE EVENT DATE: 20180101
